FAERS Safety Report 24192054 (Version 1)
Quarter: 2024Q3

REPORT INFORMATION
  Report Type: Spontaneous
  Country: US (occurrence: US)
  Receive Date: 20240809
  Receipt Date: 20240809
  Transmission Date: 20241017
  Serious: Yes (Other)
  Sender: SPECGX
  Company Number: US-SPECGX-T202401656

PATIENT
  Sex: Male
  Weight: 136 kg

DRUGS (3)
  1. FENTANYL TRANSDERMAL SYSTEM [Suspect]
     Active Substance: FENTANYL
     Indication: Neuropathy peripheral
     Dosage: 1 PATCH EVERY 3 DAYS (72 HOURS)
     Route: 062
     Dates: start: 20240727
  2. FENTANYL TRANSDERMAL SYSTEM [Suspect]
     Active Substance: FENTANYL
     Indication: Procedural pain
  3. OXYCODONE [Suspect]
     Active Substance: OXYCODONE
     Indication: Product used for unknown indication
     Dosage: 6 DOSAGE FORM, QD
     Route: 065

REACTIONS (4)
  - Neck surgery [Unknown]
  - Drug withdrawal syndrome [Unknown]
  - Product adhesion issue [Unknown]
  - Drug ineffective [Unknown]

NARRATIVE: CASE EVENT DATE: 20220101
